FAERS Safety Report 14209625 (Version 2)
Quarter: 2017Q4

REPORT INFORMATION
  Report Type: Spontaneous
  Country: US (occurrence: US)
  Receive Date: 20171121
  Receipt Date: 20171215
  Transmission Date: 20180321
  Serious: No
  Sender: FDA-Public Use
  Company Number: US-INCYTE CORPORATION-2017IN009712

PATIENT

DRUGS (1)
  1. JAKAFI [Suspect]
     Active Substance: RUXOLITINIB
     Dosage: 2.5 MG, BID (SPLITTING 5 MG TABLET)
     Route: 048
     Dates: start: 20170412

REACTIONS (2)
  - Incorrect dose administered [Unknown]
  - Off label use [Unknown]
